FAERS Safety Report 17792219 (Version 8)
Quarter: 2021Q2

REPORT INFORMATION
  Report Type: Report from Study
  Country: US (occurrence: US)
  Receive Date: 20200515
  Receipt Date: 20210407
  Transmission Date: 20210716
  Serious: No
  Sender: FDA-Public Use
  Company Number: NVSC2020US132916

PATIENT
  Sex: Female

DRUGS (4)
  1. COSENTYX [Suspect]
     Active Substance: SECUKINUMAB
     Indication: PSORIASIS
     Dosage: UNK
     Route: 058
  2. COSENTYX [Suspect]
     Active Substance: SECUKINUMAB
     Indication: PSORIATIC ARTHROPATHY
     Dosage: 150 MG, QMO
     Route: 058
  3. COSENTYX [Suspect]
     Active Substance: SECUKINUMAB
     Route: 058
  4. COSENTYX [Suspect]
     Active Substance: SECUKINUMAB
     Dosage: 150 MG, QMO
     Route: 058

REACTIONS (4)
  - Psoriasis [Unknown]
  - Product dose omission issue [Unknown]
  - Therapeutic product effect decreased [Unknown]
  - Arthralgia [Unknown]
